FAERS Safety Report 10194256 (Version 2)
Quarter: 2014Q2

REPORT INFORMATION
  Report Type: Spontaneous
  Country: FI (occurrence: FI)
  Receive Date: 20140526
  Receipt Date: 20140526
  Transmission Date: 20141212
  Serious: Yes (Hospitalization, Other)
  Sender: FDA-Public Use
  Company Number: FI-ROCHE-1379882

PATIENT
  Age: 52 Year
  Sex: Female

DRUGS (11)
  1. XOLAIR [Suspect]
     Indication: ASTHMA
     Route: 058
     Dates: start: 201101
  2. XOLAIR [Suspect]
     Route: 065
     Dates: start: 201402, end: 201402
  3. SERETIDE [Concomitant]
  4. SINGULAIR [Concomitant]
  5. VENTOLINE [Concomitant]
  6. IPRATROPIUM BROMIDE [Concomitant]
  7. AERIUS [Concomitant]
  8. FLIXONASE [Concomitant]
  9. NEXIUM [Concomitant]
  10. LOSATRIX COMP [Concomitant]
     Route: 065
  11. AMLODIPIN [Concomitant]

REACTIONS (4)
  - Renal cancer [Unknown]
  - Pneumonia [Unknown]
  - Sepsis [Unknown]
  - Sinusitis [Unknown]
